FAERS Safety Report 8516838-5 (Version None)
Quarter: 2012Q3

REPORT INFORMATION
  Report Type: 
  Country: None (occurrence: None)
  Receive Date: 20120706
  Receipt Date: 20120628
  Transmission Date: 20120928
  Serious: Yes (Death, Life-Threatening)
  Sender: FDA-Public Use
  Company Number: DAV-AE-MTX-12-54

PATIENT
  Age: 10 Year
  Sex: Female

DRUGS (3)
  1. METHOTREXATE [Suspect]
     Indication: BONE SARCOMA
     Dosage: HIGH DOSE, UNKNOWN
  2. CISPLATIN [Concomitant]
  3. ADRIAMYCIN PFS [Concomitant]

REACTIONS (6)
  - MENTAL STATUS CHANGES [None]
  - CONVULSION [None]
  - NAUSEA [None]
  - VOMITING [None]
  - WERNICKE'S ENCEPHALOPATHY [None]
  - MALNUTRITION [None]
